FAERS Safety Report 17434300 (Version 1)
Quarter: 2020Q1

REPORT INFORMATION
  Report Type: Spontaneous
  Country: US (occurrence: US)
  Receive Date: 20200203
  Receipt Date: 20200203
  Transmission Date: 20200409
  Serious: Yes (Hospitalization)
  Sender: FDA-Public Use
  Company Number: None

PATIENT
  Age: 71 Year
  Sex: Male

DRUGS (3)
  1. OLANZAPINE (OLANZAPINE 5MG TAB (1/2 TAB)) [Suspect]
     Active Substance: OLANZAPINE
     Indication: INSOMNIA
     Route: 048
     Dates: start: 20190315, end: 20191125
  2. OLANZAPINE (OLANZAPINE 5MG TAB (1/2 TAB)) [Suspect]
     Active Substance: OLANZAPINE
     Indication: HALLUCINATION
     Route: 048
     Dates: start: 20190315, end: 20191125
  3. OLANZAPINE (OLANZAPINE 5MG TAB (1/2 TAB)) [Suspect]
     Active Substance: OLANZAPINE
     Indication: MOOD SWINGS
     Route: 048
     Dates: start: 20190315, end: 20191125

REACTIONS (2)
  - Cardiac failure [None]
  - Chronic obstructive pulmonary disease [None]

NARRATIVE: CASE EVENT DATE: 20191231
